FAERS Safety Report 6090601-X (Version None)
Quarter: 2009Q1

REPORT INFORMATION
  Report Type: 
  Country: None (occurrence: None)
  Receive Date: 20090224
  Receipt Date: 20090113
  Transmission Date: 20090719
  Serious: No
  Sender: FDA-Public Use
  Company Number: US-ABBOTT-09P-163-0497610-00

PATIENT
  Age: 56 Year
  Sex: Male

DRUGS (2)
  1. SIMCOR [Suspect]
     Indication: DRUG USE FOR UNKNOWN INDICATION
     Dosage: 500/20 MILLIGRAMS
     Dates: start: 20090108, end: 20090109
  2. ASPIRIN [Concomitant]
     Indication: DRUG USE FOR UNKNOWN INDICATION

REACTIONS (5)
  - FEELING HOT [None]
  - FLUSHING [None]
  - HYPERHIDROSIS [None]
  - INSOMNIA [None]
  - PARAESTHESIA [None]
